FAERS Safety Report 18338027 (Version 2)
Quarter: 2022Q3

REPORT INFORMATION
  Report Type: Spontaneous
  Country: JP (occurrence: JP)
  Receive Date: 20201002
  Receipt Date: 20220713
  Transmission Date: 20221026
  Serious: Yes (Other)
  Sender: FDA-Public Use
  Company Number: JP-GSKNCCC-CASE-01043251_AE-34656

PATIENT

DRUGS (3)
  1. DUTASTERIDE [Suspect]
     Active Substance: DUTASTERIDE
     Indication: Benign prostatic hyperplasia
     Dosage: 0.5 MG
     Route: 048
     Dates: start: 201804
  2. CHLORMADINONE ACETATE [Concomitant]
     Active Substance: CHLORMADINONE ACETATE
     Indication: Benign prostatic hyperplasia
     Dosage: UNK
     Dates: start: 201804
  3. NAFTOPIDIL [Concomitant]
     Active Substance: NAFTOPIDIL
     Dosage: UNK

REACTIONS (1)
  - Prostate cancer [Unknown]
